FAERS Safety Report 6451471-0 (Version None)
Quarter: 2009Q4

REPORT INFORMATION
  Report Type: 
  Country: None (occurrence: None)
  Receive Date: 20091123
  Receipt Date: 20090406
  Transmission Date: 20100525
  Serious: No
  Sender: FDA-Public Use
  Company Number: US-BRISTOL-MYERS SQUIBB COMPANY-14572143

PATIENT
  Age: 64 Year
  Sex: Female

DRUGS (2)
  1. AVALIDE [Suspect]
     Indication: BLOOD PRESSURE MANAGEMENT
     Dosage: STRENGTH: 300MG/12.5MG 1 DF: 300MG/12.5MG
  2. ATENOLOL [Suspect]

REACTIONS (7)
  - BLOOD POTASSIUM DECREASED [None]
  - DYSPNOEA [None]
  - FATIGUE [None]
  - HEART RATE IRREGULAR [None]
  - OSTEOARTHRITIS [None]
  - PAIN IN EXTREMITY [None]
  - RASH [None]
